FAERS Safety Report 7036903-1 (Version None)
Quarter: 2010Q4

REPORT INFORMATION
  Report Type: 
  Country: None (occurrence: None)
  Receive Date: 20101011
  Receipt Date: 20101006
  Transmission Date: 20110411
  Serious: Yes (Death)
  Sender: FDA-Public Use
  Company Number: FR-ASTRAZENECA-2010SE47178

PATIENT
  Age: 32715 Day
  Sex: Female

DRUGS (14)
  1. NEXIUM [Suspect]
     Route: 048
     Dates: start: 20100507
  2. PERFALGAN [Suspect]
     Dosage: 10 MG/ML 1 DF THREE TIMES A DAY
     Route: 042
     Dates: start: 20100507, end: 20100517
  3. APRANAX [Suspect]
     Route: 048
     Dates: start: 20100507, end: 20100517
  4. LOVENOX [Suspect]
     Route: 058
     Dates: start: 20100507, end: 20100517
  5. FUROSEMIDE [Suspect]
     Route: 048
     Dates: end: 20100517
  6. BISOPROLOL FUMARATE [Suspect]
     Route: 048
     Dates: end: 20100517
  7. LOXAPAC [Suspect]
     Dosage: 10 DROPS SIX TIMES A DAY
     Route: 048
     Dates: start: 20100507, end: 20100517
  8. FENOFIBRATE [Suspect]
     Route: 048
     Dates: end: 20100517
  9. TOPALGIC [Suspect]
     Dosage: AS REQUIRED
     Route: 048
     Dates: start: 20100507
  10. PROFENID [Concomitant]
     Route: 048
     Dates: start: 20100507, end: 20100507
  11. ACUPAN [Concomitant]
     Route: 042
     Dates: start: 20100510, end: 20100510
  12. AUGMENTIN '125' [Concomitant]
     Route: 042
     Dates: start: 20100514
  13. FUNGIZONE [Concomitant]
     Route: 002
     Dates: start: 20100514
  14. HUMALOG [Concomitant]
     Route: 058
     Dates: start: 20100514

REACTIONS (1)
  - RENAL FAILURE ACUTE [None]
